FAERS Safety Report 6929113-7 (Version None)
Quarter: 2010Q3

REPORT INFORMATION
  Report Type: 
  Country: None (occurrence: None)
  Receive Date: 20100812
  Receipt Date: 20100803
  Transmission Date: 20110219
  Serious: Yes (Hospitalization)
  Sender: FDA-Public Use
  Company Number: DKLU1064122

PATIENT
  Age: 41 Year
  Sex: Male

DRUGS (8)
  1. INDOCIN [Suspect]
     Indication: GOUT
     Dosage: 25 MG MILLIGRAM(S), 3 IN 1 D
  2. FUROSEMIDE [Suspect]
     Indication: CONGESTIVE CARDIOMYOPATHY
     Dosage: 80 MG MILLIGRAM(S), 2 IN 1 D
  3. AMIODARONE HCL [Concomitant]
  4. BISOPROLOL FUMARATE [Concomitant]
  5. METOLAZONE [Concomitant]
  6. RAMIPRIL [Concomitant]
  7. SPIRONOLACTONE [Concomitant]
  8. WARFARIN SODIUM [Concomitant]

REACTIONS (9)
  - CONDITION AGGRAVATED [None]
  - DEAFNESS NEUROSENSORY [None]
  - DIZZINESS [None]
  - DRUG TOXICITY [None]
  - FLUID RETENTION [None]
  - GOUT [None]
  - HAEMODIALYSIS [None]
  - RENAL FAILURE CHRONIC [None]
  - TINNITUS [None]
